FAERS Safety Report 4619579-X (Version None)
Quarter: 2005Q1

REPORT INFORMATION
  Report Type: 
  Country: None (occurrence: None)
  Receive Date: 20050324
  Receipt Date: 20050314
  Transmission Date: 20050727
  Serious: Yes (Hospitalization)
  Sender: FDA-Public Use
  Company Number: 2004237406US

PATIENT
  Age: 73 Year
  Sex: Female
  Weight: 64.85 kg

DRUGS (13)
  1. CELECOXIB (CELECOXIB) [Suspect]
     Indication: COLORECTAL CANCER METASTATIC
     Dosage: 800 MG (400 MG, 2 IN 1 D), ORAL
     Route: 048
     Dates: start: 20040824, end: 20041004
  2. IRINOTECAN HCL [Suspect]
     Indication: COLORECTAL CANCER METASTATIC
     Dosage: (CYCLIC), INTRAVENOUS
     Route: 042
     Dates: start: 20040824, end: 20040907
  3. FLUOROURACIL [Suspect]
     Indication: COLORECTAL CANCER METASTATIC
     Dosage: (CYCLIC), INTRAVENOUS
     Route: 042
     Dates: start: 20040824, end: 20050131
  4. BEVACIZUMAB (BEVACIZUMAB) [Suspect]
     Indication: COLORECTAL CANCER METASTATIC
     Dosage: 328 MG (1 IN 2 WK), INTRAVENOUS
     Route: 042
     Dates: start: 20040824, end: 20040907
  5. FENTANYL [Concomitant]
  6. LANSOPRAZOLE [Concomitant]
  7. LISINOPRIL [Concomitant]
  8. METOCLOPRAMIDE [Concomitant]
  9. SUCRALFATE [Concomitant]
  10. HYDROMORPHONE HCL [Concomitant]
  11. PROMETHAZINE HYDROCHLORIDE TAB [Concomitant]
  12. WARFARIN SODIUM [Concomitant]
  13. LOPERAMIDE [Concomitant]

REACTIONS (12)
  - APHASIA [None]
  - BACTERIAL INFECTION [None]
  - BLINDNESS [None]
  - BLOOD CULTURE POSITIVE [None]
  - CATHETER RELATED INFECTION [None]
  - CEREBROVASCULAR ACCIDENT [None]
  - COMA [None]
  - CONVULSION [None]
  - DEAFNESS [None]
  - HYPERTENSIVE ENCEPHALOPATHY [None]
  - ISCHAEMIC CEREBRAL INFARCTION [None]
  - LEUKOENCEPHALOPATHY [None]
